FAERS Safety Report 25198525 (Version 1)
Quarter: 2025Q2

REPORT INFORMATION
  Report Type: Spontaneous
  Country: IT (occurrence: IT)
  Receive Date: 20250415
  Receipt Date: 20250415
  Transmission Date: 20250717
  Serious: Yes (Other)
  Sender: pharmaAND
  Company Number: IT-Pharmaand-2025000331

PATIENT
  Sex: Female

DRUGS (1)
  1. PEGASYS [Suspect]
     Active Substance: PEGINTERFERON ALFA-2A
     Indication: Granulomatosis with polyangiitis

REACTIONS (3)
  - Cutaneous vasculitis [Unknown]
  - Off label use [Recovered/Resolved]
  - Granulomatosis with polyangiitis [Recovered/Resolved]
